FAERS Safety Report 4568232-X (Version None)
Quarter: 2005Q1

REPORT INFORMATION
  Report Type: 
  Country: None (occurrence: None)
  Receive Date: 20050202
  Receipt Date: 20050116
  Transmission Date: 20050727
  Serious: Yes (Other)
  Sender: FDA-Public Use
  Company Number: PHEH2005US01006

PATIENT
  Sex: Female

DRUGS (2)
  1. ELIDEL [Suspect]
     Indication: PSORIASIS
     Dosage: UNK, BID
     Route: 061
     Dates: start: 20041101, end: 20050101
  2. ETHANOL [Suspect]
     Route: 048

REACTIONS (6)
  - ALCOHOL INTERACTION [None]
  - APPLICATION SITE ERYTHEMA [None]
  - APPLICATION SITE IRRITATION [None]
  - FACE OEDEMA [None]
  - FLUSHING [None]
  - SWOLLEN TONGUE [None]
